FAERS Safety Report 5287806-4 (Version None)
Quarter: 2007Q1

REPORT INFORMATION
  Report Type: 
  Country: None (occurrence: None)
  Receive Date: 20070109
  Receipt Date: 20060407
  Transmission Date: 20070707
  Serious: Yes (Hospitalization, Other)
  Sender: FDA-Public Use
  Company Number: PERC20060023

PATIENT
  Age: 54 Year
  Sex: Male
  Weight: 95.2554 kg

DRUGS (19)
  1. PERCOCET [Suspect]
     Indication: BREAKTHROUGH PAIN
     Dosage: 2 TABS DAILY PO
     Route: 048
     Dates: start: 20050201, end: 20060219
  2. ORAVESCENT FENTANYL UNK CEPHALON [Suspect]
     Indication: BREAKTHROUGH PAIN
     Dosage: 800 UG PRN BUCCAL
     Route: 002
     Dates: start: 20051230, end: 20060219
  3. ROXICODONE [Suspect]
     Indication: PAIN
     Dosage: 15 MG Q6H PO
     Route: 048
     Dates: start: 20051027, end: 20060219
  4. PROPOXYPHENE/ACETAMINOPHEN  10MG/325 MG [Suspect]
     Indication: BACK PAIN
     Dosage: 10 MG/325 MG  PO
     Route: 048
     Dates: start: 20040101, end: 20060219
  5. MELOXICAM [Concomitant]
  6. ATORVASTATIN CALCIUM [Concomitant]
  7. GLYBURIDE [Concomitant]
  8. ASPIRIN [Concomitant]
  9. CLOPIDOGREL [Concomitant]
  10. NIACIN SUSTAINED RELEASE [Concomitant]
  11. NITROGLYCERIN [Concomitant]
  12. LAMICTAL [Concomitant]
  13. ZOLOFT [Concomitant]
  14. SERTRALINE [Concomitant]
  15. METOPROLOL SUCCINATE [Concomitant]
  16. LOVASTATIN [Concomitant]
  17. TRIAMTERENE AND HYDROCHLOROTHIAZIDE [Concomitant]
  18. SKELAXIN [Concomitant]
  19. SEROQUEL [Concomitant]

REACTIONS (6)
  - ACCIDENTAL OVERDOSE [None]
  - COMA [None]
  - DRUG WITHDRAWAL SYNDROME [None]
  - DYSPEPSIA [None]
  - RESPIRATORY DISTRESS [None]
  - VOMITING [None]
